FAERS Safety Report 7968553 (Version 2)
Quarter: 2014Q1

REPORT INFORMATION
  Report Type: Spontaneous
  Country: US (occurrence: None)
  Receive Date: 20110302
  Receipt Date: 20140306
  Transmission Date: 20141002
  Serious: Yes (Other)
  Sender: FDA-Public Use
  Company Number: 163-21880-10051139

PATIENT
  Age: 73 Year
  Sex: Male

DRUGS (3)
  1. REVLIMID (LENALIDOMIDE) (15 MILLIGRAM, CAPSULES) [Suspect]
     Indication: PLASMA CELL MYELOMA
     Dosage: 10 MG, 1 IN 1 D, PO; 15 MG, 1 IN 1 D, PO
     Route: 048
     Dates: start: 200805, end: 200807
  2. IBUPROFEN (IBUPROFEN) [Concomitant]
  3. ASPIRIN (ACETYLSALICYLIC ACID) [Concomitant]

REACTIONS (8)
  - Dermatitis bullous [None]
  - Dry throat [None]
  - Dysphonia [None]
  - Nasal dryness [None]
  - Dry skin [None]
  - Pruritus generalised [None]
  - Dyspnoea [None]
  - Abdominal discomfort [None]
